FAERS Safety Report 9805369 (Version 1)
Quarter: 2014Q1

REPORT INFORMATION
  Report Type: Spontaneous
  Country: US (occurrence: US)
  Receive Date: 20140109
  Receipt Date: 20140109
  Transmission Date: 20141002
  Serious: No
  Sender: FDA-Public Use
  Company Number: US-PFIZER INC-2014004755

PATIENT
  Age: 47 Year
  Sex: Male
  Weight: 99.77 kg

DRUGS (3)
  1. GEODON [Suspect]
     Indication: BIPOLAR DISORDER
     Dosage: 40 MG, 2X/DAY
     Dates: end: 2013
  2. GEODON [Suspect]
     Indication: THINKING ABNORMAL
  3. RISPERIDONE [Concomitant]
     Indication: BIPOLAR DISORDER
     Dosage: UNK, 1X/DAY (AT NIGHT)
     Dates: start: 2013

REACTIONS (3)
  - Agitation [Unknown]
  - Speech disorder [Unknown]
  - Feeling abnormal [Unknown]
